FAERS Safety Report 17233189 (Version 1)
Quarter: 2020Q1

REPORT INFORMATION
  Report Type: Spontaneous
  Country: SE (occurrence: SE)
  Receive Date: 20200104
  Receipt Date: 20200104
  Transmission Date: 20200409
  Serious: Yes (Hospitalization)
  Sender: FDA-Public Use
  Company Number: SE-TEVA-2019-SE-1160986

PATIENT
  Age: 15 Year
  Sex: Female
  Weight: 95 kg

DRUGS (3)
  1. PROPAVAN [Suspect]
     Active Substance: PROPIOMAZINE
     Dosage: 600 MG
     Route: 048
     Dates: start: 20190516, end: 20190516
  2. FLUOXETINE [Suspect]
     Active Substance: FLUOXETINE HYDROCHLORIDE
     Dosage: 130 MG
     Route: 048
     Dates: start: 20190516, end: 20190516
  3. ATARAX [Suspect]
     Active Substance: HYDROXYZINE HYDROCHLORIDE
     Dosage: 425 MG
     Route: 048
     Dates: start: 20190516, end: 20190516

REACTIONS (3)
  - Intentional overdose [Unknown]
  - Somnolence [Unknown]
  - Intentional self-injury [Unknown]

NARRATIVE: CASE EVENT DATE: 20190516
